FAERS Safety Report 8958304 (Version 1)
Quarter: 2012Q4

REPORT INFORMATION
  Report Type: 
  Country: US (occurrence: US)
  Receive Date: 20121210
  Receipt Date: 20121210
  Transmission Date: 20130627
  Serious: No
  Sender: FDA-Public Use
  Company Number: US-TEVA-344865USA

PATIENT

DRUGS (2)
  1. ROCURONIUM [Suspect]
  2. DIPROVAN [Concomitant]

REACTIONS (1)
  - Drug ineffective [Unknown]
